FAERS Safety Report 6161471-6 (Version None)
Quarter: 2009Q2

REPORT INFORMATION
  Report Type: 
  Country: None (occurrence: None)
  Receive Date: 20090417
  Receipt Date: 20090417
  Transmission Date: 20091009
  Serious: No
  Sender: FDA-Public Use
  Company Number: None

PATIENT
  Sex: Female
  Weight: 70.45 kg

DRUGS (1)
  1. AMLODIPINE [Suspect]
     Dosage: ORAL
     Route: 048
     Dates: start: 20090331, end: 20090416

REACTIONS (1)
  - CONSTIPATION [None]
